FAERS Safety Report 5485196-5 (Version None)
Quarter: 2007Q4

REPORT INFORMATION
  Report Type: 
  Country: None (occurrence: None)
  Receive Date: 20071015
  Receipt Date: 20071004
  Transmission Date: 20080405
  Serious: Yes (Hospitalization)
  Sender: FDA-Public Use
  Company Number: IE-ELI_LILLY_AND_COMPANY-IE200710001707

PATIENT
  Sex: Female

DRUGS (4)
  1. OLANZAPINE [Suspect]
     Indication: BIPOLAR DISORDER
     Dosage: 7.5 MG, EACH EVENING
  2. OLANZAPINE [Suspect]
     Dosage: 2.5 MG, EACH EVENING
  3. DEPIXOL [Concomitant]
     Dosage: 20 MG, UNK
  4. HMG COA REDUCTASE INHIBITORS [Concomitant]

REACTIONS (4)
  - BRAIN OEDEMA [None]
  - CONFUSIONAL STATE [None]
  - FALL [None]
  - GAIT DISTURBANCE [None]
